FAERS Safety Report 8068742-7 (Version None)
Quarter: 2012Q1

REPORT INFORMATION
  Report Type: 
  Country: None (occurrence: None)
  Receive Date: 20120124
  Receipt Date: 20111205
  Transmission Date: 20120608
  Serious: No
  Sender: FDA-Public Use
  Company Number: US-AMGEN-USASP2011057102

PATIENT
  Age: 81 Year
  Sex: Female

DRUGS (4)
  1. URSODIOL [Concomitant]
     Dosage: UNK
  2. PROLIA [Suspect]
     Indication: OSTEOPOROSIS POSTMENOPAUSAL
     Dosage: 60 MG, Q6MO
     Dates: start: 20110201
  3. PROLIA [Suspect]
     Dosage: 60 MG, Q6MO
     Dates: start: 20110822
  4. INFLUENZA VACCINE [Concomitant]
     Dosage: UNK
     Dates: start: 20111020

REACTIONS (5)
  - ARTHRALGIA [None]
  - HYPOAESTHESIA [None]
  - MUSCULOSKELETAL STIFFNESS [None]
  - INSOMNIA [None]
  - MYALGIA [None]
